FAERS Safety Report 7321116-6 (Version None)
Quarter: 2011Q1

REPORT INFORMATION
  Report Type: 
  Country: None (occurrence: None)
  Receive Date: 20110228
  Receipt Date: 20110218
  Transmission Date: 20110831
  Serious: Yes (Hospitalization, Other)
  Sender: FDA-Public Use
  Company Number: US-ASTRAZENECA-2011SE08495

PATIENT
  Age: 598 Month
  Sex: Male

DRUGS (1)
  1. NEXIUM [Suspect]
     Route: 048

REACTIONS (7)
  - ENDOSCOPY [None]
  - HODGKIN'S DISEASE STAGE IV [None]
  - GASTROOESOPHAGEAL REFLUX DISEASE [None]
  - NON-HODGKIN'S LYMPHOMA [None]
  - HOSPITALISATION [None]
  - DRUG DOSE OMISSION [None]
  - APHAGIA [None]
